FAERS Safety Report 4275990-0 (Version None)
Quarter: 2004Q1

REPORT INFORMATION
  Report Type: 
  Country: None (occurrence: None)
  Receive Date: 20040116
  Receipt Date: 20031104
  Transmission Date: 20041129
  Serious: Yes (Other)
  Sender: FDA-Public Use
  Company Number: 2003IM000701

PATIENT
  Age: 59 Year
  Sex: Male
  Weight: 100.2449 kg

DRUGS (8)
  1. INTERFERON GAMMA 1 B [Suspect]
     Indication: INTERSTITIAL LUNG DISEASE
     Dosage: 200 UG; TIW; SUBCUTANEOUS
     Route: 058
     Dates: start: 20021122, end: 20030627
  2. PREDNISONE [Concomitant]
  3. ACTONEL [Concomitant]
  4. PEPCID [Concomitant]
  5. LASIX [Concomitant]
  6. TYELENOL [Concomitant]
  7. TUMS [Interacting]
  8. GLUCOPHAGE [Concomitant]

REACTIONS (13)
  - BACTERIAL INFECTION [None]
  - BLOOD CULTURE POSITIVE [None]
  - CHEMICAL POISONING [None]
  - HYPOXIA [None]
  - INFLUENZA LIKE ILLNESS [None]
  - INJECTION SITE ERYTHEMA [None]
  - INJECTION SITE WARMTH [None]
  - PNEUMONIA [None]
  - RASH [None]
  - RASH MACULAR [None]
  - RICKETTSIOSIS [None]
  - SHIFT TO THE LEFT [None]
  - WHITE BLOOD CELL COUNT INCREASED [None]
